FAERS Safety Report 23031835 (Version 2)
Quarter: 2023Q4

REPORT INFORMATION
  Report Type: Report from Study
  Country: US (occurrence: US)
  Receive Date: 20231005
  Receipt Date: 20231101
  Transmission Date: 20240110
  Serious: Yes (Other)
  Sender: FDA-Public Use
  Company Number: US-ABBVIE-5426770

PATIENT
  Sex: Male
  Weight: 76.203 kg

DRUGS (8)
  1. HUMIRA [Suspect]
     Active Substance: ADALIMUMAB
     Indication: Crohn^s disease
     Dosage: FORM STRENGTH: 40 MILLIGRAM?CITRATE FREE
     Route: 058
     Dates: start: 20230918
  2. HUMIRA [Suspect]
     Active Substance: ADALIMUMAB
     Dosage: FORM STRENGTH: 40 MILLIGRAM?CITRATE FREE
     Route: 058
     Dates: start: 202306, end: 20230829
  3. HUMIRA [Suspect]
     Active Substance: ADALIMUMAB
     Dosage: FORM STRENGTH: 40 MILLIGRAM?CITRATE FREE
     Route: 058
     Dates: start: 20230905, end: 20230905
  4. HUMIRA [Suspect]
     Active Substance: ADALIMUMAB
     Dosage: FORM STRENGTH: 80 MILLIGRAM?CITRATE FREE
     Route: 058
     Dates: start: 20230522, end: 202306
  5. ASPIRIN [Concomitant]
     Active Substance: ASPIRIN
     Indication: Cardiac disorder
     Dosage: FORM STRENGTH: 80 MILLIGRAM
  6. ATORVASTATIN [Concomitant]
     Active Substance: ATORVASTATIN
     Indication: Blood cholesterol
  7. ENTRESTO [Concomitant]
     Active Substance: SACUBITRIL\VALSARTAN
     Indication: Cardiac disorder
  8. VITAMIN C [Concomitant]
     Active Substance: ASCORBIC ACID
     Indication: Product used for unknown indication

REACTIONS (16)
  - Intervertebral disc protrusion [Not Recovered/Not Resolved]
  - Off label use [Not Recovered/Not Resolved]
  - Fatigue [Recovering/Resolving]
  - Memory impairment [Recovered/Resolved]
  - Confusional state [Unknown]
  - Nasopharyngitis [Recovered/Resolved]
  - Headache [Recovering/Resolving]
  - Stool analysis abnormal [Not Recovered/Not Resolved]
  - Intervertebral discitis [Recovering/Resolving]
  - Sleep disorder [Unknown]
  - Memory impairment [Unknown]
  - Blood pressure increased [Unknown]
  - Dizziness [Unknown]
  - Therapeutic product effect incomplete [Unknown]
  - Knee operation [Unknown]
  - Unevaluable event [Unknown]

NARRATIVE: CASE EVENT DATE: 20230101
